FAERS Safety Report 6560577-7 (Version None)
Quarter: 2010Q1

REPORT INFORMATION
  Report Type: 
  Country: None (occurrence: None)
  Receive Date: 20100129
  Receipt Date: 20090923
  Transmission Date: 20100710
  Serious: No
  Sender: FDA-Public Use
  Company Number: US-ABBOTT-09P-163-0598768-00

PATIENT
  Sex: Female

DRUGS (2)
  1. HUMIRA [Suspect]
     Indication: CROHN'S DISEASE
     Dates: start: 20071111
  2. HUMIRA [Suspect]
     Indication: CROHN'S DISEASE
     Dates: start: 20071111

REACTIONS (5)
  - CHEST PAIN [None]
  - HEADACHE [None]
  - INJECTION SITE PAIN [None]
  - INJECTION SITE SWELLING [None]
  - WEIGHT INCREASED [None]
